FAERS Safety Report 5081949-6 (Version None)
Quarter: 2006Q3

REPORT INFORMATION
  Report Type: 
  Country: None (occurrence: None)
  Receive Date: 20060811
  Receipt Date: 20060805
  Transmission Date: 20061208
  Serious: Yes (Other)
  Sender: FDA-Public Use
  Company Number: GXKR2006SE04595

PATIENT
  Age: 73 Year
  Sex: Male

DRUGS (1)
  1. RIFAMPICIN [Suspect]
     Indication: INFECTION
     Dosage: ORAL
     Route: 048

REACTIONS (2)
  - LIVER DISORDER [None]
  - NEUROPATHY [None]
